FAERS Safety Report 6638181-1 (Version None)
Quarter: 2010Q1

REPORT INFORMATION
  Report Type: 
  Country: None (occurrence: None)
  Receive Date: 20100317
  Receipt Date: 20100312
  Transmission Date: 20100710
  Serious: Yes (Hospitalization)
  Sender: FDA-Public Use
  Company Number: A0849886A

PATIENT
  Age: 25 Year
  Sex: Female

DRUGS (1)
  1. ALLI [Suspect]
     Route: 048

REACTIONS (13)
  - ABDOMINAL PAIN UPPER [None]
  - CARDIAC ARREST [None]
  - CHOLECYSTECTOMY [None]
  - DIARRHOEA [None]
  - DYSPNOEA [None]
  - EATING DISORDER [None]
  - GALLBLADDER DISORDER [None]
  - HYPERTENSION [None]
  - LIVER FUNCTION TEST ABNORMAL [None]
  - MUSCULOSKELETAL PAIN [None]
  - PAIN [None]
  - PANCREATIC ENLARGEMENT [None]
  - VOMITING [None]
